FAERS Safety Report 11227673 (Version 4)
Quarter: 2015Q4

REPORT INFORMATION
  Report Type: Spontaneous
  Country: BR (occurrence: BR)
  Receive Date: 20150630
  Receipt Date: 20151005
  Transmission Date: 20160304
  Serious: Yes (Other)
  Sender: FDA-Public Use
  Company Number: BR-SA-2015SA091030

PATIENT
  Sex: Male
  Weight: 63 kg

DRUGS (7)
  1. APIDRA [Suspect]
     Active Substance: INSULIN GLULISINE
     Indication: TYPE 1 DIABETES MELLITUS
     Route: 065
  2. CARBAMAZEPINE. [Concomitant]
     Active Substance: CARBAMAZEPINE
     Indication: ANTIDEPRESSANT THERAPY
     Route: 048
  3. CLIKSTAR [Concomitant]
     Active Substance: CLIKSTAR
     Indication: TYPE 1 DIABETES MELLITUS
  4. CLIKSTAR [Concomitant]
     Active Substance: CLIKSTAR
     Indication: TYPE 1 DIABETES MELLITUS
  5. ENALAPRIL [Concomitant]
     Active Substance: ENALAPRIL
     Indication: BLOOD PRESSURE MEASUREMENT
     Dosage: STRENGTH: 25MG
     Route: 048
  6. LANTUS [Suspect]
     Active Substance: INSULIN GLARGINE
     Indication: TYPE 1 DIABETES MELLITUS
     Dosage: TREATMENT START DATE: APPROXIMATELY 8-10 YEARS AGO
     Route: 065
  7. HYDROCHLOROTHIAZIDE. [Concomitant]
     Active Substance: HYDROCHLOROTHIAZIDE
     Indication: DIURETIC THERAPY
     Route: 048

REACTIONS (7)
  - Gait disturbance [Recovering/Resolving]
  - Unevaluable event [Unknown]
  - Foot fracture [Recovering/Resolving]
  - Diabetic neuropathy [Recovering/Resolving]
  - Road traffic accident [Unknown]
  - Pain [Recovering/Resolving]
  - Mass [Recovered/Resolved]

NARRATIVE: CASE EVENT DATE: 2013
